FAERS Safety Report 18356048 (Version 1)
Quarter: 2020Q4

REPORT INFORMATION
  Report Type: Spontaneous
  Country: CA (occurrence: CA)
  Receive Date: 20201007
  Receipt Date: 20201007
  Transmission Date: 20210114
  Serious: Yes (Other)
  Sender: FDA-Public Use
  Company Number: CA-FRESENIUS KABI-FK202010361

PATIENT
  Sex: Male

DRUGS (7)
  1. CARBOPLATIN. [Suspect]
     Active Substance: CARBOPLATIN
     Indication: PANCREATIC NEUROENDOCRINE TUMOUR METASTATIC
     Route: 065
  2. EVEROLIMUS. [Suspect]
     Active Substance: EVEROLIMUS
     Indication: PANCREATIC NEUROENDOCRINE TUMOUR METASTATIC
     Route: 065
  3. OCTREOTIDE ACETATE. [Suspect]
     Active Substance: OCTREOTIDE ACETATE
     Indication: PANCREATIC NEUROENDOCRINE TUMOUR METASTATIC
     Route: 065
  4. LANREOTIDE [Concomitant]
     Active Substance: LANREOTIDE
     Indication: PRODUCT USED FOR UNKNOWN INDICATION
     Route: 065
  5. TEMOZOLOMIDE. [Suspect]
     Active Substance: TEMOZOLOMIDE
     Indication: PANCREATIC NEUROENDOCRINE TUMOUR METASTATIC
     Route: 065
  6. ETOPOSIDE (MANUFACTURER UNKNOWN) [Suspect]
     Active Substance: ETOPOSIDE
     Indication: PANCREATIC NEUROENDOCRINE TUMOUR METASTATIC
     Route: 065
  7. CAPECITABINE. [Suspect]
     Active Substance: CAPECITABINE
     Indication: PANCREATIC NEUROENDOCRINE TUMOUR
     Route: 048

REACTIONS (5)
  - Pancreatic neuroendocrine tumour metastatic [Unknown]
  - Treatment failure [Unknown]
  - Malignant neoplasm progression [Unknown]
  - Product use in unapproved indication [Unknown]
  - Toxicity to various agents [Unknown]
